FAERS Safety Report 22638260 (Version 1)
Quarter: 2023Q2

REPORT INFORMATION
  Report Type: Spontaneous
  Country: ES (occurrence: ES)
  Receive Date: 20230626
  Receipt Date: 20230626
  Transmission Date: 20230722
  Serious: Yes (Other)
  Sender: FDA-Public Use
  Company Number: None

PATIENT
  Age: 58 Year
  Sex: Female

DRUGS (7)
  1. ELTROMBOPAG [Suspect]
     Active Substance: ELTROMBOPAG
     Indication: Immune thrombocytopenia
     Dosage: 50 MG (A-CE)
     Route: 065
     Dates: start: 20220131
  2. PARACETAMOL CINFA [Concomitant]
     Indication: Headache
     Dosage: 1 G (DECOCE) (40 TABLETS)
     Route: 048
     Dates: start: 20191022
  3. DILTIAZEM STADA [Concomitant]
     Indication: Tachycardia
     Dosage: 60 MG (DE) (60 TABLETS)
     Route: 048
     Dates: start: 20210503
  4. RAMIPRIL [Concomitant]
     Active Substance: RAMIPRIL
     Indication: Essential hypertension
     Dosage: 5 MG (DE)
     Route: 048
     Dates: start: 20210504
  5. OMEPRAZOLE MAGNESIUM [Concomitant]
     Active Substance: OMEPRAZOLE MAGNESIUM
     Indication: Hypothyroidism
     Dosage: 20 MG, (A-DE) (56 CAPSULES)
     Route: 048
     Dates: start: 20190417
  6. LORAZEPAM [Concomitant]
     Active Substance: LORAZEPAM
     Indication: Insomnia
     Dosage: 1 MG, Q24H (NOC) (50 TABLETS)
     Route: 048
     Dates: start: 20210104
  7. LEVOTHYROXINE SODIUM [Concomitant]
     Active Substance: LEVOTHYROXINE SODIUM
     Indication: Hypothyroidism
     Dosage: 50 UG (A-DE)
     Route: 048
     Dates: start: 20190417

REACTIONS (1)
  - Vision blurred [Recovering/Resolving]

NARRATIVE: CASE EVENT DATE: 20220215
